FAERS Safety Report 11345033 (Version 1)
Quarter: 2015Q3

REPORT INFORMATION
  Report Type: Spontaneous
  Country: US (occurrence: US)
  Receive Date: 20150806
  Receipt Date: 20150806
  Transmission Date: 20151125
  Serious: Yes (Other)
  Sender: FDA-Public Use
  Company Number: CHPA2015US009186

PATIENT
  Age: 88 Year
  Sex: Male

DRUGS (2)
  1. CLARITIN [Concomitant]
     Active Substance: LORATADINE
     Indication: SINUS DISORDER
     Dosage: UNK
     Route: 065
     Dates: start: 20150515
  2. VOLTAREN [Suspect]
     Active Substance: DICLOFENAC SODIUM
     Indication: BONE DISORDER
     Dosage: 4 G, QID
     Route: 061
     Dates: start: 20141114

REACTIONS (9)
  - Hypertension [Recovering/Resolving]
  - Skin disorder [Not Recovered/Not Resolved]
  - Blood pressure systolic increased [Recovering/Resolving]
  - Skin exfoliation [Not Recovered/Not Resolved]
  - Skin texture abnormal [Not Recovered/Not Resolved]
  - Drug administered at inappropriate site [Unknown]
  - Product use issue [Unknown]
  - Pain [Not Recovered/Not Resolved]
  - Skin discolouration [Not Recovered/Not Resolved]

NARRATIVE: CASE EVENT DATE: 20141114
